FAERS Safety Report 18515223 (Version 1)
Quarter: 2020Q4

REPORT INFORMATION
  Report Type: Spontaneous
  Country: CN (occurrence: CN)
  Receive Date: 20201118
  Receipt Date: 20201118
  Transmission Date: 20210114
  Serious: Yes (Other)
  Sender: FDA-Public Use
  Company Number: CN-ASTRAZENECA-2020SF50292

PATIENT
  Age: 11966 Day
  Sex: Male
  Weight: 62 kg

DRUGS (1)
  1. BUDESONIDE. [Suspect]
     Active Substance: BUDESONIDE
     Indication: PNEUMONIA
     Route: 055
     Dates: start: 20201008, end: 20201009

REACTIONS (8)
  - Dyspnoea [Recovering/Resolving]
  - Sinus tachycardia [Unknown]
  - Speech disorder [Unknown]
  - Pruritus [Unknown]
  - Heart rate increased [Unknown]
  - Orthopnoea [Unknown]
  - Hypersensitivity [Unknown]
  - Wheezing [Recovering/Resolving]

NARRATIVE: CASE EVENT DATE: 20201008
